FAERS Safety Report 18459040 (Version 1)
Quarter: 2020Q4

REPORT INFORMATION
  Report Type: Spontaneous
  Country: NL (occurrence: NL)
  Receive Date: 20201103
  Receipt Date: 20201103
  Transmission Date: 20210114
  Serious: Yes (Hospitalization)
  Sender: FDA-Public Use
  Company Number: NL-MYLANLABS-2020M1091027

PATIENT
  Sex: Female
  Weight: 90 kg

DRUGS (7)
  1. OMEPRAZOL                          /00661201/ [Concomitant]
     Active Substance: OMEPRAZOLE
     Dosage: MAAGSAPRESISTENTE CAPSULE, 20 MG (MILLIGRAM)
  2. PARACETAMOL [Concomitant]
     Active Substance: ACETAMINOPHEN
     Dosage: TABLET, 1000 MG (MILLIGRAM)
  3. AMITRIPTYLINE [Suspect]
     Active Substance: AMITRIPTYLINE
     Indication: NEURALGIA
     Dosage: 10 MILLIGRAM, QD
  4. BUPROPION. [Concomitant]
     Active Substance: BUPROPION
     Dosage: TABLET MET GEREGULEERDE AFGIFTE, 300 MG (MILLIGRAM)
  5. AMITRIPTYLINE [Suspect]
     Active Substance: AMITRIPTYLINE
     Dosage: 30 MILLIGRAM, QD
     Dates: start: 20200911, end: 20201008
  6. GABAPENTINE [Concomitant]
     Active Substance: GABAPENTIN
     Dosage: CAPSULE, 300 MG (MILLIGRAM)
  7. CLONAZEPAM. [Concomitant]
     Active Substance: CLONAZEPAM
     Dosage: TABLET, 0,5 MG (MILLIGRAM)

REACTIONS (4)
  - Dyspepsia [Recovering/Resolving]
  - Nausea [Recovering/Resolving]
  - Abdominal pain [Recovering/Resolving]
  - Decreased appetite [Recovering/Resolving]
